FAERS Safety Report 5903549-5 (Version None)
Quarter: 2008Q3

REPORT INFORMATION
  Report Type: 
  Country: None (occurrence: None)
  Receive Date: 20080930
  Receipt Date: 20080918
  Transmission Date: 20090109
  Serious: Yes (Hospitalization)
  Sender: FDA-Public Use
  Company Number: PHHO2008KR10507

PATIENT
  Sex: Male
  Weight: 53.3 kg

DRUGS (2)
  1. TRILEPTAL T22413+FCTAB [Suspect]
     Indication: EPILEPSY
     Dosage: 1500MG/D
     Route: 048
     Dates: start: 20080605, end: 20080827
  2. TOPAMAX [Concomitant]
     Indication: EPILEPSY

REACTIONS (10)
  - AGGRESSION [None]
  - CONVULSION [None]
  - DISEASE PROGRESSION [None]
  - DRUG INEFFECTIVE [None]
  - GASTROINTESTINAL TUBE INSERTION [None]
  - HALLUCINATION, AUDITORY [None]
  - HALLUCINATION, VISUAL [None]
  - MENTAL DISORDER [None]
  - POSTICTAL STATE [None]
  - STATUS EPILEPTICUS [None]
